FAERS Safety Report 7270866-9 (Version None)
Quarter: 2011Q1

REPORT INFORMATION
  Report Type: 
  Country: None (occurrence: None)
  Receive Date: 20110202
  Receipt Date: 20110125
  Transmission Date: 20110831
  Serious: Yes (Other)
  Sender: FDA-Public Use
  Company Number: GB-ASTRAZENECA-2011SE04306

PATIENT
  Age: 25 Year
  Sex: Male

DRUGS (15)
  1. ZOPICLONE [Concomitant]
     Route: 065
  2. QUETIAPINE [Suspect]
     Route: 048
     Dates: start: 20101219, end: 20110105
  3. VALPROATE SODIUM [Suspect]
     Indication: MANIA
     Route: 048
     Dates: start: 20101221
  4. DIAZEPAM [Concomitant]
     Route: 065
  5. HALOPERIDOL [Concomitant]
     Route: 065
  6. ACETAMINOPHEN [Concomitant]
     Route: 065
  7. RISPERIDONE [Concomitant]
     Route: 065
  8. CLOZAPINE [Concomitant]
     Route: 065
     Dates: end: 20101207
  9. QUETIAPINE [Suspect]
     Indication: SCHIZOPHRENIA
     Route: 048
     Dates: start: 20101216
  10. VALPROATE SODIUM [Suspect]
     Route: 048
     Dates: start: 20101223
  11. VALPROATE SODIUM [Suspect]
     Route: 048
     Dates: start: 20101224, end: 20110105
  12. PROCYCLIDINE [Concomitant]
     Route: 065
  13. HYOSCINE HBR HYT [Concomitant]
     Route: 065
  14. COD LIVER OIL [Concomitant]
     Route: 065
  15. MULTI-VITAMIN [Concomitant]
     Route: 065

REACTIONS (4)
  - PLATELET COUNT DECREASED [None]
  - WHITE BLOOD CELL COUNT DECREASED [None]
  - LYMPHOCYTE COUNT DECREASED [None]
  - NEUTROPENIA [None]
